FAERS Safety Report 4365030-7 (Version None)
Quarter: 2004Q2

REPORT INFORMATION
  Report Type: 
  Country: None (occurrence: None)
  Receive Date: 20040521
  Receipt Date: 20040504
  Transmission Date: 20050107
  Serious: Yes (Death)
  Sender: FDA-Public Use
  Company Number: B0332838A

PATIENT
  Age: 57 Year
  Sex: Male

DRUGS (1)
  1. EPIVIR [Suspect]
     Indication: HEPATITIS B
     Dosage: ORAL
     Route: 048

REACTIONS (12)
  - ABASIA [None]
  - ACUTE RESPIRATORY FAILURE [None]
  - BIOPSY MUSCLE ABNORMAL [None]
  - BIOPSY PERIPHERAL NERVE ABNORMAL [None]
  - CARDIAC ARREST [None]
  - DYSPHONIA [None]
  - MITOCHONDRIAL DNA DEPLETION [None]
  - MUSCULAR WEAKNESS [None]
  - NEUROPATHY PERIPHERAL [None]
  - PERIPHERAL SENSORIMOTOR NEUROPATHY [None]
  - QUADRIPARESIS [None]
  - VASCULITIS [None]
